FAERS Safety Report 8155224 (Version 8)
Quarter: 2015Q2

REPORT INFORMATION
  Report Type: Spontaneous
  Country: JP (occurrence: None)
  Receive Date: 20110914
  Receipt Date: 20150630
  Transmission Date: 20150821
  Serious: Yes (Death, Hospitalization, Other)
  Sender: FDA-Public Use
  Company Number: 2009JP007145

PATIENT
  Age: 48 Year
  Sex: Male
  Weight: 63 kg

DRUGS (69)
  1. FERROMIA (FERROUS SODIUM CITRATE) [Concomitant]
  2. FOSAMAC (ALENDRONATE SODIUM) [Concomitant]
  3. AVELOX (MOXIFLOXACIN HYDROCHLORIDE) [Concomitant]
  4. CEFAMEZIN (CEFAZOLIN) [Concomitant]
     Active Substance: CEFAZOLIN
  5. FLUITRAN (TRICHLORMETHIAZIDE) [Concomitant]
  6. RESTAMIN  (DIPHENHYDRAMINE) [Concomitant]
  7. KAYWAN (PHYTOMENADIONE) [Concomitant]
  8. NEXIUM [Concomitant]
     Active Substance: ESOMEPRAZOLE MAGNESIUM
  9. PURSENIDE (SENNOSIDE A+B) [Concomitant]
  10. HIRUDOID  (HEPARINOID) [Concomitant]
  11. SOLITA-T1 (GLUCOSE, SODIUM CHLORIDE, SODIUM LACTATE) [Concomitant]
  12. NU-LOTAN (LOSARTAN POTASSIUM) TABLET [Concomitant]
  13. PROGRAF [Suspect]
     Active Substance: TACROLIMUS\TACROLIMUS ANHYDROUS
     Indication: LUPUS NEPHRITIS
     Dosage: 3 MG, ONCE DAILY, ORAL
     Route: 048
     Dates: start: 20080215, end: 20120131
  14. MINOMYCIN (MINOCYCLINE HYDROCHLORIDE) [Concomitant]
     Indication: C-REACTIVE PROTEIN INCREASED
  15. NATRIX (INDAPAMIDE) [Concomitant]
  16. SELBEX (TEPRENONE) [Concomitant]
     Active Substance: TEPRENONE
  17. MEIACT (CEFDITOREN PIVOXIL) [Concomitant]
     Active Substance: CEFDITOREN PIVOXIL
  18. FEBURIC (FEBUXOSTAT) [Concomitant]
     Active Substance: FEBUXOSTAT
  19. GLYCERIN  (GLYCEROL) [Concomitant]
  20. PREDONINE [Suspect]
     Active Substance: PREDNISOLONE\PREDNISOLONE ACETATE\PREDNISOLONE SODIUM SUCCINATE
     Indication: LUPUS NEPHRITIS
     Dosage: 15 MG, ONCE DAILY, ORAL
     Route: 048
     Dates: end: 20091013
  21. ALEVIATIN (PHENYTOIN) PER ORAL NOS [Suspect]
     Active Substance: PHENYTOIN SODIUM
     Indication: NEUROPSYCHIATRIC LUPUS
     Dosage: 300 MG, ONCE DAILY, ORAL
     Route: 048
     Dates: end: 20090622
  22. CLINDAMYCIN [Concomitant]
     Active Substance: CLINDAMYCIN\CLINDAMYCIN PHOSPHATE
  23. FOLIAMIN (FOLIC ACID) [Concomitant]
     Active Substance: FOLIC ACID
  24. THYRADIN S (LEVOTHYROXINE SODIUM) [Concomitant]
  25. EXCEGRAN (ZONISAMIDE) [Concomitant]
  26. PHENOBAL (PHENOBARBITAL)? [Concomitant]
  27. PYDOXAL (PYRIDOXAL PHOSPHATE) [Concomitant]
  28. GENTACIN (GENTAMICIN SULFATE) [Concomitant]
     Active Substance: GENTAMICIN SULFATE
  29. URALYT  (POTASSIUM CITRATE, SODIUM CITRATE DIHYDRATE) [Concomitant]
  30. SP TROCHE (DEQUALINIUM CHLORIDE) [Concomitant]
  31. ESPO (EPOETIN ALFA) [Concomitant]
  32. NESP (DARBEPOETIN ALFA) [Concomitant]
  33. COCARL (PARACETAMOL) [Concomitant]
  34. SAMSCA [Concomitant]
     Active Substance: TOLVAPTAN
  35. SEFMAZON (CEFAZOLIN SODIUM) [Concomitant]
  36. ALINAMIN-F (FURSULTIAMINE HYDROCHLORIDE) [Concomitant]
  37. POPIYODON (POVIDONE-IODINE) [Concomitant]
  38. INCREMIN  (FERRIC PYROPHOSPHATE) [Concomitant]
  39. ZINC OXIDE SIMPLE OINTMENT (ZINC OXIDE) [Concomitant]
  40. FAMOTIDINE (FAMOTIDINE) [Concomitant]
     Active Substance: FAMOTIDINE
  41. CEFTAZIDIME (CEFTAZIDIME) [Concomitant]
     Active Substance: CEFTAZIDIME
  42. MOHRUS (KETOPROFEN) [Concomitant]
  43. LUPRAC (TORASEMIDE)? [Concomitant]
  44. BAKTAR (SULFAMETHOXAZOLE, TRIMETHOPRIM) TABLET [Concomitant]
     Active Substance: SULFAMETHOXAZOLE\TRIMETHOPRIM
  45. WARFARIN (WARFARIN) [Concomitant]
     Active Substance: WARFARIN
  46. ZYLORIC (ALLOPURINOL) [Concomitant]
     Active Substance: ALLOPURINOL
  47. LULICON (LULICONAZOLE) [Concomitant]
  48. ISOTONIC SODIUM CHLORIDE SOLUTION (SODIUM CHLORIDE) [Concomitant]
  49. EPOGIN (EPOETIN BETA) [Concomitant]
  50. PROSTANDIN (ALPROSTADIL ALFADEX) [Concomitant]
  51. MUCOSTA (REBAMIPIDE) [Concomitant]
  52. NAUZELIN (DOMPERIDONE) [Concomitant]
  53. FOSAMAC (ALENDRONATE SODIUM) [Concomitant]
  54. SELTOUCH (FELBINAC) [Concomitant]
     Active Substance: FELBINAC
  55. GASTER [Concomitant]
     Active Substance: FAMOTIDINE
  56. CEFTRIAXONE SODIUM (CEFTRIAXONE SODIUM) [Concomitant]
  57. PRIMPERAN (METOCLOPRAMIDE) ??? [Concomitant]
  58. PREDONINE [Suspect]
     Active Substance: PREDNISOLONE\PREDNISOLONE ACETATE\PREDNISOLONE SODIUM SUCCINATE
     Indication: LUPUS NEPHRITIS
     Dates: start: 20130711, end: 20130711
  59. LASIX [Concomitant]
     Active Substance: FUROSEMIDE
  60. MEVALOTIN (PRAVASTATIN SODIUM) [Concomitant]
     Active Substance: PRAVASTATIN SODIUM
  61. ISCOTIN (ISONIAZID) [Concomitant]
  62. POSTERISAN FORTE (ESCHERICHIA COLI, HYDROCORTISONE) [Concomitant]
  63. SUMILU (FELBINAC) [Concomitant]
  64. ALDACTONE [Concomitant]
     Active Substance: SPIRONOLACTONE
  65. ROPION (FLURBIPROFEN AXETIL) [Concomitant]
  66. VITAMEDIN (BENFOTIAMINE) [Concomitant]
  67. MOHRUS (KETOPROFEN) [Concomitant]
  68. MIRCERA (PEGZEREPOETIN ALFA) [Concomitant]
  69. GRAN (FILGRASTIM) [Concomitant]

REACTIONS (32)
  - Hypokalaemia [None]
  - Altered state of consciousness [None]
  - Renal impairment [None]
  - Dry skin [None]
  - Disuse syndrome [None]
  - Dehydration [None]
  - Oropharyngeal discomfort [None]
  - Rectal prolapse [None]
  - Anaemia [None]
  - Activities of daily living impaired [None]
  - Dermatitis diaper [None]
  - Pneumonia [None]
  - Pruritus [None]
  - International normalised ratio increased [None]
  - Pubis fracture [None]
  - Pyelonephritis [None]
  - C-reactive protein increased [None]
  - Condition aggravated [None]
  - Clavicle fracture [None]
  - Prothrombin time prolonged [None]
  - Constipation [None]
  - Oedema [None]
  - Fall [None]
  - Chronic kidney disease [None]
  - Pyrexia [None]
  - Viral infection [None]
  - Genital ulceration [None]
  - Muscular weakness [None]
  - Nausea [None]
  - Contusion [None]
  - Neutropenia [None]
  - Cystitis [None]

NARRATIVE: CASE EVENT DATE: 20080423
